FAERS Safety Report 9505960 (Version 1)
Quarter: 2013Q1

REPORT INFORMATION
  Report Type: Spontaneous
  Country: US (occurrence: None)
  Receive Date: 20130305
  Receipt Date: 20130305
  Transmission Date: 20140127
  Serious: No
  Sender: FDA-Public Use
  Company Number: 1000041197

PATIENT
  Age: 76 Year
  Sex: Female

DRUGS (7)
  1. DALIRESP (ROFLUMILAST) (500 MICROGRAM, TABLETS) [Suspect]
     Indication: CHRONIC OBSTRUCTIVE PULMONARY DISEASE
     Route: 048
     Dates: start: 20121206
  2. CARDIZEM (DILTIAZEM) (DILTIAZEM) [Concomitant]
  3. ZANTAC (RANITIDINE HYDROCHLORIDE) (RANITIDIE HYDROCHLORIDE) [Concomitant]
  4. SYMBICORT (BUDESONIDE W^/FORMOTEROL FUMARATE) (BUDESONIDE W/FORMOTEROL FUMARATE) [Concomitant]
  5. SINGULAIR [Concomitant]
  6. DIOVAN (VALSARTAN) (VALSARTAN) [Concomitant]
  7. GLUCOSAMINE (GLUCOSAMINE) (GLUCOSAMINE) [Concomitant]

REACTIONS (5)
  - Back pain [None]
  - Diarrhoea [None]
  - Insomnia [None]
  - Dizziness [None]
  - Nausea [None]
